FAERS Safety Report 9148848 (Version 1)
Quarter: 2013Q1

REPORT INFORMATION
  Report Type: Spontaneous
  Country: FR (occurrence: FR)
  Receive Date: 20130308
  Receipt Date: 20130308
  Transmission Date: 20140127
  Serious: Yes (Hospitalization)
  Sender: FDA-Public Use
  Company Number: 2013SP002815

PATIENT
  Age: 54 Year
  Sex: Female

DRUGS (22)
  1. VANCOMYCIN [Suspect]
     Indication: INFLAMMATION
     Dates: start: 20121121, end: 20121210
  2. VANCOMYCIN [Suspect]
     Indication: PYREXIA
     Dates: start: 20121121, end: 20121210
  3. AUGMENTIN /00852501/ [Suspect]
     Indication: INFLAMMATION
     Dates: start: 20121121, end: 20121210
  4. AUGMENTIN /00852501/ [Suspect]
     Indication: PYREXIA
     Dates: start: 20121121, end: 20121210
  5. TAZOCILLINE [Suspect]
     Indication: INFLAMMATION
     Dates: start: 20121124, end: 20121210
  6. TAZOCILLINE [Suspect]
     Indication: PYREXIA
     Dates: start: 20121124, end: 20121210
  7. CALCIPARINE [Suspect]
     Indication: ARTERIOVENOUS FISTULA THROMBOSIS
     Dates: start: 20121124, end: 20121210
  8. GENTAMICIN [Suspect]
     Indication: INFLAMMATION
     Dates: start: 20121123, end: 20121125
  9. GENTAMICIN [Suspect]
     Indication: PYREXIA
     Dates: start: 20121123, end: 20121125
  10. AMIKACIN [Suspect]
     Indication: PRODUCT USED FOR UNKNOWN INDICATION
     Dates: start: 20121125, end: 20121210
  11. CALCIUM CARBONATE [Concomitant]
     Indication: PRODUCT USED FOR UNKNOWN INDICATION
  12. FLUINDIONE [Concomitant]
     Indication: PRODUCT USED FOR UNKNOWN INDICATION
  13. CORTANCYL [Concomitant]
     Indication: PRODUCT USED FOR UNKNOWN INDICATION
  14. ESOMEPRAZOLE [Concomitant]
     Indication: PRODUCT USED FOR UNKNOWN INDICATION
  15. FUROSEMIDE [Concomitant]
     Indication: PRODUCT USED FOR UNKNOWN INDICATION
  16. CINACALCET HYDROCHLORIDE [Concomitant]
     Indication: PRODUCT USED FOR UNKNOWN INDICATION
  17. UVEDOSE [Concomitant]
     Indication: PRODUCT USED FOR UNKNOWN INDICATION
  18. PHENOXYMETHYLPENICILLIN POTASSIUM [Concomitant]
     Indication: PRODUCT USED FOR UNKNOWN INDICATION
  19. PHOSPHOSORB [Concomitant]
     Indication: PRODUCT USED FOR UNKNOWN INDICATION
  20. PRAVASTATIN [Concomitant]
     Indication: PRODUCT USED FOR UNKNOWN INDICATION
  21. PROGRAF [Concomitant]
     Indication: PRODUCT USED FOR UNKNOWN INDICATION
  22. PROZAC [Concomitant]
     Indication: PRODUCT USED FOR UNKNOWN INDICATION

REACTIONS (10)
  - Clostridium difficile colitis [Recovered/Resolved]
  - Toxic skin eruption [Unknown]
  - Rash maculo-papular [Recovered/Resolved]
  - Blister [Recovered/Resolved]
  - Pruritus [Recovered/Resolved]
  - Eczema [Unknown]
  - Skin plaque [Unknown]
  - Skin erosion [Unknown]
  - Dermatitis [Unknown]
  - Diarrhoea [Recovered/Resolved]
